FAERS Safety Report 4741498-9 (Version None)
Quarter: 2005Q3

REPORT INFORMATION
  Report Type: 
  Country: None (occurrence: None)
  Receive Date: 20050808
  Receipt Date: 20050725
  Transmission Date: 20060218
  Serious: Yes (Hospitalization)
  Sender: FDA-Public Use
  Company Number: WAES 0507CHN00016

PATIENT
  Age: 70 Year
  Sex: Male

DRUGS (6)
  1. COZAAR [Suspect]
     Indication: CARDIAC FAILURE
     Dosage: PO
     Route: 048
     Dates: start: 20041020, end: 20041102
  2. COZAAR [Suspect]
     Indication: CARDIAC FAILURE
     Dosage: PO
     Route: 048
     Dates: start: 20041103, end: 20050721
  3. ASPIRIN [Concomitant]
  4. DIGOXIN [Concomitant]
  5. FUROSEMIDE [Concomitant]
  6. ISOSORBIDE DINITRATE [Concomitant]

REACTIONS (4)
  - CARBOHYDRATE ANTIGEN 19-9 INCREASED [None]
  - CHOLELITHIASIS [None]
  - GALLBLADDER ENLARGEMENT [None]
  - PLEURAL EFFUSION [None]
